FAERS Safety Report 6178697-8 (Version None)
Quarter: 2009Q2

REPORT INFORMATION
  Report Type: 
  Country: None (occurrence: None)
  Receive Date: 20090504
  Receipt Date: 20081211
  Transmission Date: 20091009
  Serious: No
  Sender: FDA-Public Use
  Company Number: US-ALEXION-A200800220

PATIENT
  Sex: Male
  Weight: 97 kg

DRUGS (3)
  1. SOLIRIS [Suspect]
     Indication: PAROXYSMAL NOCTURNAL HAEMOGLOBINURIA
     Dosage: 600 MG, QWK X 4WKS
     Route: 042
     Dates: start: 20080424, end: 20080515
  2. SOLIRIS [Suspect]
     Dosage: 900 MG, Q2WKS
     Route: 042
     Dates: start: 20080522, end: 20080925
  3. ARANESP [Suspect]
     Indication: ANAEMIA
     Dosage: 300 UG, UNK
     Dates: start: 20071001

REACTIONS (4)
  - ABDOMINAL PAIN [None]
  - BONE PAIN [None]
  - DRUG INEFFECTIVE [None]
  - FATIGUE [None]
